FAERS Safety Report 16917929 (Version 2)
Quarter: 2019Q4

REPORT INFORMATION
  Report Type: Spontaneous
  Country: AU (occurrence: AU)
  Receive Date: 20191015
  Receipt Date: 20191219
  Transmission Date: 20200122
  Serious: Yes (Hospitalization, Other)
  Sender: FDA-Public Use
  Company Number: AU-SUNOVION-2019DSP012469

PATIENT
  Age: 30 Year
  Sex: Male

DRUGS (4)
  1. SODIUM VALPROATE UNKNOWN FORMULATION [Suspect]
     Active Substance: VALPROATE SODIUM
     Dosage: 1000 MG, BID
     Route: 065
  2. DIAZEPAM. [Suspect]
     Active Substance: DIAZEPAM
     Dosage: PRN (AS NEEDED)
     Route: 065
  3. LATUDA [Suspect]
     Active Substance: LURASIDONE HYDROCHLORIDE
     Dosage: AT NIGHT
     Route: 048
  4. OLANZAPINE. [Suspect]
     Active Substance: OLANZAPINE
     Dosage: 10 MG, BID
     Route: 065

REACTIONS (4)
  - Hallucination, auditory [Unknown]
  - Depressed mood [Unknown]
  - Intentional self-injury [Unknown]
  - Suicidal ideation [Unknown]

NARRATIVE: CASE EVENT DATE: 2018
